FAERS Safety Report 24037646 (Version 1)
Quarter: 2024Q3

REPORT INFORMATION
  Report Type: Spontaneous
  Country: US (occurrence: US)
  Receive Date: 20240702
  Receipt Date: 20240702
  Transmission Date: 20241016
  Serious: No
  Sender: SANOFI AVENTIS
  Company Number: US-SA-SAC20240624001366

PATIENT
  Age: 9 Year
  Sex: Female

DRUGS (1)
  1. DUPIXENT [Suspect]
     Active Substance: DUPILUMAB
     Indication: Eczema
     Dosage: 200MG FREQUENCY: EVERY 2 WEEKS
     Route: 058
     Dates: start: 20230727

REACTIONS (1)
  - Skin hypopigmentation [Unknown]

NARRATIVE: CASE EVENT DATE: 20240501
